FAERS Safety Report 7595189-X (Version None)
Quarter: 2011Q3

REPORT INFORMATION
  Report Type: 
  Country: None (occurrence: None)
  Receive Date: 20110707
  Receipt Date: 20110704
  Transmission Date: 20111222
  Serious: Yes (Other)
  Sender: FDA-Public Use
  Company Number: NL-PFIZER INC-2011148817

PATIENT
  Age: 40 Year
  Sex: Male

DRUGS (1)
  1. NEURONTIN [Suspect]
     Dosage: 300 MG, 2 TO 3 TIMES A DAY

REACTIONS (2)
  - HIP SURGERY [None]
  - HAEMATOMA [None]
